FAERS Safety Report 7880040-0 (Version None)
Quarter: 2011Q4

REPORT INFORMATION
  Report Type: 
  Country: None (occurrence: None)
  Receive Date: 20111101
  Receipt Date: 20110824
  Transmission Date: 20120403
  Serious: Yes (Other)
  Sender: FDA-Public Use
  Company Number: AR-ROCHE-GNE323750

PATIENT
  Sex: Female

DRUGS (1)
  1. LUCENTIS [Suspect]
     Indication: VISUAL IMPAIRMENT
     Dosage: 1 DF, 1/MONTH
     Route: 050
     Dates: start: 20100601

REACTIONS (5)
  - EYE HAEMORRHAGE [None]
  - VISUAL IMPAIRMENT [None]
  - EYE PAIN [None]
  - VISUAL ACUITY REDUCED [None]
  - DRUG INEFFECTIVE [None]
